FAERS Safety Report 4333979-7 (Version None)
Quarter: 2004Q2

REPORT INFORMATION
  Report Type: 
  Country: None (occurrence: None)
  Receive Date: 20040402
  Receipt Date: 20040323
  Transmission Date: 20050107
  Serious: Yes (Death)
  Sender: FDA-Public Use
  Company Number: 2004JP000638

PATIENT
  Age: 39 Year
  Sex: Male

DRUGS (2)
  1. PROGRAF [Suspect]
     Indication: RENAL TRANSPLANT
     Dosage: 2.00 MG TID
     Dates: start: 19990711, end: 20040115
  2. PROGRAF [Suspect]
     Indication: RENAL TRANSPLANT
     Dosage: 2.00 MG TID
     Dates: start: 20040116, end: 20040212

REACTIONS (1)
  - LEUKOENCEPHALOPATHY [None]
